FAERS Safety Report 19287922 (Version 1)
Quarter: 2021Q2

REPORT INFORMATION
  Report Type: Spontaneous
  Country: US (occurrence: US)
  Receive Date: 20210522
  Receipt Date: 20210522
  Transmission Date: 20210717
  Serious: No
  Sender: FDA-Public Use
  Company Number: US-AMGEN-USASP2021073305

PATIENT
  Age: 65 Year
  Sex: Female

DRUGS (1)
  1. PROLIA [Suspect]
     Active Substance: DENOSUMAB
     Indication: OSTEOPOROSIS POSTMENOPAUSAL
     Dosage: 60 MILLIGRAM, Q6MO
     Route: 065
     Dates: start: 2017

REACTIONS (8)
  - Scab [Unknown]
  - Fibromyalgia [Unknown]
  - Bone pain [Unknown]
  - Headache [Unknown]
  - Migraine [Recovering/Resolving]
  - Nodule [Unknown]
  - Scoliosis [Unknown]
  - Skin discolouration [Unknown]

NARRATIVE: CASE EVENT DATE: 202104
